FAERS Safety Report 11272488 (Version 1)
Quarter: 2015Q3

REPORT INFORMATION
  Report Type: Spontaneous
  Country: IT (occurrence: IT)
  Receive Date: 20150715
  Receipt Date: 20150715
  Transmission Date: 20151125
  Serious: Yes (Other)
  Sender: FDA-Public Use
  Company Number: IT-ACTAVIS-2015-14513

PATIENT
  Age: 72 Year
  Sex: Male
  Weight: 69 kg

DRUGS (7)
  1. FLUOROURACIL. [Suspect]
     Active Substance: FLUOROURACIL
     Indication: ADENOCARCINOMA OF COLON
     Dosage: 3200 MG, CYCLICAL
     Route: 041
     Dates: start: 20150102, end: 20150421
  2. FLUOROURACIL. [Suspect]
     Active Substance: FLUOROURACIL
     Dosage: 4290 MG, CYCLICAL, DOSE DECREASED
     Route: 041
     Dates: start: 20150102, end: 20150421
  3. LEVOFOLINIC ACID [Concomitant]
     Active Substance: LEVOLEUCOVORIN
     Indication: PRODUCT USED FOR UNKNOWN INDICATION
     Dosage: 350 MG, UNKNOWN
     Route: 042
     Dates: start: 20150102, end: 20150421
  4. IRINOTECAN (UNKNOWN) [Suspect]
     Active Substance: IRINOTECAN
     Indication: ADENOCARCINOMA OF COLON
     Dosage: 320 MG, CYCLICAL
     Route: 042
     Dates: start: 20150102, end: 20150421
  5. FLUOROURACIL. [Suspect]
     Active Substance: FLUOROURACIL
     Dosage: 710 MG, CYCLICAL, DOSE DECREASED
     Route: 040
     Dates: start: 20150102, end: 20150421
  6. BEVACIZUMAB [Suspect]
     Active Substance: BEVACIZUMAB
     Indication: ADENOCARCINOMA OF COLON
     Dosage: 350 MG, CYCLICAL
     Route: 042
     Dates: start: 20150227, end: 20150609
  7. FLUOROURACIL. [Suspect]
     Active Substance: FLUOROURACIL
     Indication: ADENOCARCINOMA OF COLON
     Dosage: 530 MG, CYCLICAL
     Route: 040
     Dates: start: 20150102, end: 20150421

REACTIONS (7)
  - Mastication disorder [Recovering/Resolving]
  - Pain in jaw [Recovering/Resolving]
  - Conjunctival haemorrhage [Recovering/Resolving]
  - Pyrexia [Recovering/Resolving]
  - Thrombocytopenia [Recovering/Resolving]
  - Neutropenia [Recovering/Resolving]
  - Paraesthesia [Not Recovered/Not Resolved]

NARRATIVE: CASE EVENT DATE: 20150205
